FAERS Safety Report 11336765 (Version 2)
Quarter: 2015Q4

REPORT INFORMATION
  Report Type: Spontaneous
  Country: FR (occurrence: FR)
  Receive Date: 20150804
  Receipt Date: 20151029
  Transmission Date: 20160304
  Serious: Yes (Other)
  Sender: FDA-Public Use
  Company Number: FR-SA-2015SA110778

PATIENT
  Age: 67 Year
  Sex: Male
  Weight: 80 kg

DRUGS (11)
  1. CYMBALTA [Suspect]
     Active Substance: DULOXETINE HYDROCHLORIDE
     Route: 048
     Dates: start: 2012
  2. VIAGRA [Concomitant]
     Active Substance: SILDENAFIL CITRATE
     Route: 048
     Dates: start: 2014
  3. FLUVASTATIN [Suspect]
     Active Substance: FLUVASTATIN SODIUM
     Dosage: PROLONGED RELEASE FILM-COATED TABLET
     Route: 048
     Dates: start: 2012
  4. KARDEGIC [Suspect]
     Active Substance: ASPIRIN LYSINE
     Dosage: SACHET
     Route: 048
     Dates: start: 2012
  5. TRUVADA [Suspect]
     Active Substance: EMTRICITABINE\TENOFOVIR DISOPROXIL FUMARATE
     Dosage: 200 MG/245 MG, FILM COATED TABLET
     Route: 048
     Dates: start: 1998
  6. GLIMEPIRIDE. [Suspect]
     Active Substance: GLIMEPIRIDE
     Route: 048
     Dates: start: 2012
  7. LANTUS [Suspect]
     Active Substance: INSULIN GLARGINE
     Route: 058
     Dates: start: 2012
  8. VIRAMUNE [Suspect]
     Active Substance: NEVIRAPINE
     Route: 048
     Dates: start: 1998
  9. DITROPAN [Suspect]
     Active Substance: OXYBUTYNIN CHLORIDE
     Dosage: SCORED TABLET
     Route: 048
     Dates: start: 2012
  10. VALSARTAN. [Suspect]
     Active Substance: VALSARTAN
     Dosage: FILM COATED DIVISIBLE TABLET
     Route: 048
     Dates: start: 2012
  11. EUCREAS [Suspect]
     Active Substance: METFORMIN HYDROCHLORIDE\VILDAGLIPTIN
     Dosage: 50 MG/100 MG: 1-0-1
     Route: 048
     Dates: start: 2012, end: 20150827

REACTIONS (2)
  - Pancreatitis acute [Recovering/Resolving]
  - Abdominal pain [Recovering/Resolving]

NARRATIVE: CASE EVENT DATE: 20150510
